FAERS Safety Report 6966133-0 (Version None)
Quarter: 2010Q3

REPORT INFORMATION
  Report Type: 
  Country: None (occurrence: None)
  Receive Date: 20100903
  Receipt Date: 20100830
  Transmission Date: 20110219
  Serious: Yes (Death, Other)
  Sender: FDA-Public Use
  Company Number: PHHY2010US52851

PATIENT
  Sex: Male
  Weight: 36.735 kg

DRUGS (1)
  1. ZOMETA [Suspect]
     Dosage: 4 MG, UNK

REACTIONS (4)
  - CARDIOVERSION [None]
  - COMA [None]
  - MALIGNANT NEOPLASM PROGRESSION [None]
  - TACHYCARDIA [None]
